FAERS Safety Report 6547525-0 (Version None)
Quarter: 2010Q1

REPORT INFORMATION
  Report Type: 
  Country: None (occurrence: None)
  Receive Date: 20100122
  Receipt Date: 20100113
  Transmission Date: 20100710
  Serious: Yes (Other)
  Sender: FDA-Public Use
  Company Number: JP-JNJFOC-20100107377

PATIENT
  Age: 64 Year
  Sex: Female

DRUGS (3)
  1. CRAVIT [Suspect]
     Indication: CYSTITIS
     Route: 048
  2. CRAVIT [Suspect]
     Route: 048
  3. CRAVIT [Suspect]
     Route: 048

REACTIONS (2)
  - INTRAOCULAR PRESSURE INCREASED [None]
  - UVEITIS [None]
